FAERS Safety Report 9532450 (Version 2)
Quarter: 2014Q1

REPORT INFORMATION
  Report Type: Spontaneous
  Country: US (occurrence: None)
  Receive Date: 20130329
  Receipt Date: 20130627
  Transmission Date: 20141002
  Serious: No
  Sender: FDA-Public Use
  Company Number: 1000041481

PATIENT
  Age: 79 Year
  Sex: Female

DRUGS (3)
  1. LINZESS [Suspect]
     Indication: IRRITABLE BOWEL SYNDROME
     Route: 048
     Dates: start: 20121214, end: 201302
  2. LINZESS [Suspect]
     Indication: CONSTIPATION
     Route: 048
     Dates: start: 20121214, end: 201302
  3. EYE ANTIBIOTIC NOS [Concomitant]

REACTIONS (6)
  - Abdominal pain [None]
  - Abdominal distension [None]
  - Flatulence [None]
  - Diarrhoea [None]
  - Fluid retention [None]
  - Hypoaesthesia [None]
